FAERS Safety Report 8890166 (Version 1)
Quarter: 2012Q4

REPORT INFORMATION
  Report Type: Spontaneous
  Country: IT (occurrence: None)
  Receive Date: 20121031
  Receipt Date: 20121031
  Transmission Date: 20130627
  Serious: Yes (Hospitalization, Other)
  Sender: FDA-Public Use
  Company Number: IT 1999 0001

PATIENT
  Age: 64 Year
  Sex: Male

DRUGS (1)
  1. LIPIODOL ULTRA FLUIDE (ETHIODIZED OIL) [Suspect]
     Indication: CHEMOEMBOLIZATION
     Dosage: (2.5 ml, intake rat3: 1/1)
     Route: 013
     Dates: start: 199811, end: 199811

REACTIONS (1)
  - Interstitial lung disease [None]
